FAERS Safety Report 5840258-5 (Version None)
Quarter: 2008Q3

REPORT INFORMATION
  Report Type: 
  Country: None (occurrence: None)
  Receive Date: 20080811
  Receipt Date: 20080806
  Transmission Date: 20090109
  Serious: Yes (Death, Hospitalization)
  Sender: FDA-Public Use
  Company Number: US-CELGENEUS-163-21880-08071707

PATIENT
  Sex: Female
  Weight: 94 kg

DRUGS (8)
  1. REVLIMID [Suspect]
     Indication: AMYLOIDOSIS
     Route: 048
     Dates: start: 20080507, end: 20080624
  2. DEXAMETHASONE [Suspect]
     Indication: AMYLOIDOSIS
     Route: 048
     Dates: start: 20080507, end: 20080624
  3. CYTOXAN [Suspect]
     Indication: AMYLOIDOSIS
     Route: 048
     Dates: start: 20080507, end: 20080624
  4. OXYGEN [Concomitant]
     Indication: DYSPNOEA
     Route: 055
     Dates: end: 20080625
  5. ACIPHEX [Concomitant]
     Indication: DRUG USE FOR UNKNOWN INDICATION
     Route: 065
  6. LEXAPRO [Concomitant]
     Indication: DRUG USE FOR UNKNOWN INDICATION
     Route: 065
  7. VITAMIN B-12 [Concomitant]
     Indication: DRUG USE FOR UNKNOWN INDICATION
     Route: 065
  8. ANTIEMETICS [Concomitant]
     Indication: DRUG USE FOR UNKNOWN INDICATION
     Route: 065

REACTIONS (17)
  - CARDIAC AMYLOIDOSIS [None]
  - CARDIAC FAILURE CONGESTIVE [None]
  - DECREASED ACTIVITY [None]
  - DECREASED APPETITE [None]
  - DECUBITUS ULCER [None]
  - DEHYDRATION [None]
  - FATIGUE [None]
  - FUNGAL INFECTION [None]
  - GLOSSODYNIA [None]
  - GROIN PAIN [None]
  - HAEMATOCRIT DECREASED [None]
  - HAEMOGLOBIN DECREASED [None]
  - PLATELET COUNT ABNORMAL [None]
  - PLATELET COUNT DECREASED [None]
  - SWOLLEN TONGUE [None]
  - SYNCOPE [None]
  - WHITE BLOOD CELL COUNT DECREASED [None]
